FAERS Safety Report 7903681-0 (Version None)
Quarter: 2011Q4

REPORT INFORMATION
  Report Type: 
  Country: None (occurrence: None)
  Receive Date: 20111109
  Receipt Date: 20111102
  Transmission Date: 20120403
  Serious: Yes (Other)
  Sender: FDA-Public Use
  Company Number: US-BAYER-2011-107426

PATIENT

DRUGS (1)
  1. NEO-SYNEPHRINE (UNSPECIFIED FORMULATION) [Suspect]
     Route: 045

REACTIONS (1)
  - DRUG ABUSER [None]
